FAERS Safety Report 5389961-4 (Version None)
Quarter: 2007Q3

REPORT INFORMATION
  Report Type: 
  Country: None (occurrence: None)
  Receive Date: 20070718
  Receipt Date: 20070201
  Transmission Date: 20080115
  Serious: No
  Sender: FDA-Public Use
  Company Number: A0637966A

PATIENT
  Age: 54 Year
  Sex: Female

DRUGS (6)
  1. HYCAMTIN [Suspect]
     Dosage: 6MG WEEKLY
     Route: 042
     Dates: start: 20070120
  2. ZOFRAN [Suspect]
     Indication: DRUG USE FOR UNKNOWN INDICATION
     Route: 065
     Dates: start: 20070120
  3. DECADRON [Suspect]
     Indication: DRUG USE FOR UNKNOWN INDICATION
     Route: 065
  4. MORPHINE [Concomitant]
  5. PHENERGAN HCL [Concomitant]
  6. VISTARIL [Concomitant]

REACTIONS (1)
  - DYSPNOEA [None]
